FAERS Safety Report 12992646 (Version 2)
Quarter: 2017Q1

REPORT INFORMATION
  Report Type: Report from Study
  Country: CN (occurrence: CN)
  Receive Date: 20161202
  Receipt Date: 20170118
  Transmission Date: 20170428
  Serious: Yes (Hospitalization)
  Sender: FDA-Public Use
  Company Number: CN-ROCHE-1858948

PATIENT
  Age: 59 Year
  Sex: Male
  Weight: 55 kg

DRUGS (1)
  1. ATEZOLIZUMAB [Suspect]
     Active Substance: ATEZOLIZUMAB
     Indication: NEOPLASM
     Dosage: DOSE OF LAST ATEZOLIZUMAB ADMINISTERED: 1200 MG?DATE OF MOST RECENT DOSE: 11/NOV/2016
     Route: 042
     Dates: start: 20161111

REACTIONS (3)
  - Interstitial lung disease [Unknown]
  - Laryngeal oedema [Recovered/Resolved with Sequelae]
  - Shock [Recovered/Resolved]

NARRATIVE: CASE EVENT DATE: 20161119
